FAERS Safety Report 8158880-2 (Version None)
Quarter: 2012Q1

REPORT INFORMATION
  Report Type: 
  Country: None (occurrence: None)
  Receive Date: 20120223
  Receipt Date: 20120220
  Transmission Date: 20120608
  Serious: Yes (Other)
  Sender: FDA-Public Use
  Company Number: TR-PFIZER INC-2012045146

PATIENT
  Age: 35 Year
  Sex: Female

DRUGS (1)
  1. VARENICLINE TARTRATE [Suspect]
     Indication: SMOKING CESSATION THERAPY

REACTIONS (5)
  - NAUSEA [None]
  - VAGINAL DISCHARGE [None]
  - SOMNOLENCE [None]
  - FALL [None]
  - DIZZINESS [None]
